FAERS Safety Report 5102746-9 (Version None)
Quarter: 2006Q3

REPORT INFORMATION
  Report Type: 
  Country: None (occurrence: None)
  Receive Date: 20060907
  Receipt Date: 20060819
  Transmission Date: 20061208
  Serious: Yes (Hospitalization)
  Sender: FDA-Public Use
  Company Number: JP200608000003

PATIENT
  Age: 62 Year
  Sex: Female
  Weight: 29.6 kg

DRUGS (16)
  1. HUMALOG [Suspect]
     Indication: DIABETES MELLITUS NON-INSULIN-DEPENDENT
     Dosage: 5 U, 2/D, (SEE IMAGE)
     Dates: start: 20051105, end: 20051106
  2. HUMALOG [Suspect]
     Indication: DIABETES MELLITUS NON-INSULIN-DEPENDENT
     Dosage: 5 U, 2/D, (SEE IMAGE)
     Dates: start: 20051107, end: 20051129
  3. HUMALOG [Suspect]
     Indication: DIABETES MELLITUS NON-INSULIN-DEPENDENT
     Dosage: 5 U, 2/D, (SEE IMAGE)
     Dates: start: 20051130, end: 20060124
  4. HUMALOG [Suspect]
     Indication: DIABETES MELLITUS NON-INSULIN-DEPENDENT
     Dosage: 5 U, 2/D, (SEE IMAGE)
     Dates: start: 20051130, end: 20060124
  5. HUMALOG [Suspect]
     Indication: DIABETES MELLITUS NON-INSULIN-DEPENDENT
     Dosage: 5 U, 2/D, (SEE IMAGE)
     Dates: start: 20060201, end: 20060215
  6. HUMALOG [Suspect]
     Indication: DIABETES MELLITUS NON-INSULIN-DEPENDENT
     Dosage: 5 U, 2/D, (SEE IMAGE)
     Dates: start: 20060201, end: 20060215
  7. HUMALOG [Suspect]
     Indication: DIABETES MELLITUS NON-INSULIN-DEPENDENT
     Dosage: 5 U, 2/D, (SEE IMAGE)
     Dates: start: 20060216, end: 20060221
  8. HUMALOG [Suspect]
     Indication: DIABETES MELLITUS NON-INSULIN-DEPENDENT
     Dosage: 5 U, 2/D, (SEE IMAGE)
     Dates: start: 20060216, end: 20060221
  9. HUMALOG [Suspect]
     Indication: DIABETES MELLITUS NON-INSULIN-DEPENDENT
     Dosage: 5 U, 2/D, (SEE IMAGE)
     Dates: start: 20060222
  10. HUMALOG [Suspect]
     Indication: DIABETES MELLITUS NON-INSULIN-DEPENDENT
     Dosage: 5 U, 2/D, (SEE IMAGE)
     Dates: start: 20060222
  11. HUMALOG MIX 25L/75NPL PEN (HUMALOG MIX 25L/75PL PEN) PEN DISPOSABLE [Concomitant]
  12. HUMALOG/GFR/ (INSULIN LISPRO) PEN, DISPOSABLE [Concomitant]
  13. RISPERDAL /SWE/ (RISPERIDONE) [Concomitant]
  14. SYMMETREL /NET/ (AMANTADINE HYDROCHLORIDE) TABLET [Concomitant]
  15. THYRADIN S (LEVOTHYROXINE SODIUM) TABLET [Concomitant]
  16. HIRTONIN (PROTIRELIN TARTRATE) AMPOULE [Concomitant]

REACTIONS (4)
  - HYPOGLYCAEMIA [None]
  - PYREXIA [None]
  - URINARY TRACT INFECTION [None]
  - WHEEZING [None]
